FAERS Safety Report 25411003 (Version 1)
Quarter: 2025Q2

REPORT INFORMATION
  Report Type: Spontaneous
  Country: US (occurrence: US)
  Receive Date: 20250609
  Receipt Date: 20250609
  Transmission Date: 20250716
  Serious: Yes (Other)
  Sender: NOVO NORDISK
  Company Number: US-NOVOPROD-1450618

PATIENT
  Age: 57 Year
  Sex: Female

DRUGS (2)
  1. WEGOVY [Suspect]
     Active Substance: SEMAGLUTIDE
     Indication: Transient ischaemic attack
     Dosage: 0.5 MG WEEKLY
     Route: 058
  2. WEGOVY [Suspect]
     Active Substance: SEMAGLUTIDE
     Indication: Overweight
     Dosage: 0.25 MG WEEKLY
     Route: 058

REACTIONS (3)
  - Carpal tunnel decompression [Recovering/Resolving]
  - Epiretinal membrane [Recovered/Resolved]
  - Oesophageal operation [Recovering/Resolving]

NARRATIVE: CASE EVENT DATE: 20240101
